FAERS Safety Report 6402603-1 (Version None)
Quarter: 2009Q4

REPORT INFORMATION
  Report Type: 
  Country: None (occurrence: None)
  Receive Date: 20091009
  Receipt Date: 20091006
  Transmission Date: 20100525
  Serious: Yes (Hospitalization, Other)
  Sender: FDA-Public Use
  Company Number: 2009SP005867

PATIENT
  Age: 74 Year
  Sex: Female
  Weight: 75 kg

DRUGS (18)
  1. TEMODAL [Suspect]
     Indication: GLIOBLASTOMA
     Dosage: 100 MG/M2; UNK; 230 MG;
     Dates: start: 20090307, end: 20090401
  2. TEMODAL [Suspect]
     Indication: GLIOBLASTOMA
     Dosage: 100 MG/M2; UNK; 230 MG;
     Dates: start: 20090207
  3. BISOHEXAL PLUS /01166101/ [Concomitant]
  4. RAMIPRIL [Concomitant]
  5. DEXAMETHASONE TAB [Concomitant]
  6. MELPERON [Concomitant]
  7. PANTOPRAZOLE SODIUM [Concomitant]
  8. SIMVASTATIN [Concomitant]
  9. COTRIM [Concomitant]
  10. MAGNESIUM VERLA [Concomitant]
  11. DEXAMETHASONE [Concomitant]
  12. DETRUSITOL [Concomitant]
  13. DEXA-CT [Concomitant]
  14. KEVATRIL [Concomitant]
  15. METOCLOPRAMIDE HYDROCHLORIDE [Concomitant]
  16. TORSEMIDE [Concomitant]
  17. XIMOVAN [Concomitant]
  18. KEPPRA [Concomitant]

REACTIONS (11)
  - APHASIA [None]
  - BLOOD THYROID STIMULATING HORMONE DECREASED [None]
  - GENERAL PHYSICAL HEALTH DETERIORATION [None]
  - HAEMATOMA [None]
  - HAEMORRHAGE [None]
  - HEMIPARESIS [None]
  - PARANOIA [None]
  - PETECHIAE [None]
  - PNEUMONIA [None]
  - THROMBOCYTOPENIA [None]
  - URINARY TRACT INFECTION [None]
